FAERS Safety Report 14165762 (Version 1)
Quarter: 2017Q4

REPORT INFORMATION
  Report Type: Report from Study
  Country: US (occurrence: US)
  Receive Date: 20171107
  Receipt Date: 20171107
  Transmission Date: 20180321
  Serious: Yes (Hospitalization)
  Sender: FDA-Public Use
  Company Number: US-PFIZER INC-2016407520

PATIENT
  Age: 77 Year
  Sex: Male
  Weight: 89 kg

DRUGS (17)
  1. TRAMADOL. [Concomitant]
     Active Substance: TRAMADOL
     Indication: PAIN
     Dosage: 100 MG, EVERY 6 HOURS AS NEEDED
     Route: 048
     Dates: start: 20160529
  2. ALBUTEROL W/IPRATROPIUM [Concomitant]
     Active Substance: ALBUTEROL\IPRATROPIUM
     Indication: RESPIRATORY THERAPY
     Dosage: 3 ML, 4X DAILY AS NEEDED
     Route: 055
     Dates: start: 20160825
  3. GLUCOSAMINE CHONDROITIN /01430901/ [Concomitant]
     Indication: VITAMIN SUPPLEMENTATION
     Dosage: [CHONDROITIN SULFATE 750MG]/[GLUCOSAMINE SULFATE 600MG], DAILY
  4. ISAVUCONAZONIUM SULFATE [Concomitant]
     Active Substance: ISAVUCONAZONIUM SULFATE
     Indication: ANTIBIOTIC THERAPY
     Dosage: 186 MG, DAILY
     Dates: start: 20160808
  5. CLARITINE [Concomitant]
     Active Substance: LORATADINE
     Indication: SEASONAL ALLERGY
     Dosage: 10 MG, DAILY PRN
     Route: 048
     Dates: start: 20160413
  6. PANTOPRAZOLE [Concomitant]
     Active Substance: PANTOPRAZOLE
     Indication: GASTROOESOPHAGEAL REFLUX DISEASE
     Dosage: 40 MG, DAILY
     Route: 048
     Dates: start: 20160825
  7. ATORVASTATIN CALCIUM. [Concomitant]
     Active Substance: ATORVASTATIN CALCIUM
     Indication: BLOOD CHOLESTEROL INCREASED
     Dosage: 20 MG, AT NOC
     Route: 048
  8. MYLOTARG [Suspect]
     Active Substance: GEMTUZUMAB OZOGAMICIN
     Indication: ACUTE MYELOID LEUKAEMIA RECURRENT
     Dosage: 3 MG/M2 PER DOSE, REGIMEN 1 MONO-THERAPY, CYCLIC
     Route: 042
     Dates: start: 20160805
  9. INSULIN LISPRO [Concomitant]
     Active Substance: INSULIN LISPRO
     Indication: DIABETES MELLITUS
     Dosage: 1-21 UNITS, 3X DAILY POST MEALS
     Route: 058
     Dates: start: 20160825
  10. ACYCLOVIR /00587301/ [Concomitant]
     Active Substance: ACYCLOVIR
     Indication: ANTIVIRAL TREATMENT
     Dosage: 200 MG, BID
     Route: 048
     Dates: start: 20160802
  11. VITAMIN D3 [Concomitant]
     Active Substance: CHOLECALCIFEROL
     Dosage: 2000 UNITS, DAILY
     Route: 048
     Dates: start: 20160608
  12. VITAMIN D3 [Concomitant]
     Active Substance: CHOLECALCIFEROL
     Indication: VITAMIN SUPPLEMENTATION
     Dosage: 2500 IU, DAILY
  13. VITAMIN B12 [Concomitant]
     Active Substance: CYANOCOBALAMIN
     Indication: VITAMIN SUPPLEMENTATION
     Dosage: 1000 MG, DAILY
     Route: 048
     Dates: start: 20160825
  14. ISAVUCONAZONIUM SULFATE [Concomitant]
     Active Substance: ISAVUCONAZONIUM SULFATE
     Indication: ANTIFUNGAL TREATMENT
  15. AMIODARONE [Concomitant]
     Active Substance: AMIODARONE
     Indication: ARRHYTHMIA
     Dosage: 250 MG, DAILY
     Route: 048
     Dates: start: 20160725
  16. BOSWELLIA GLUCOSAMINE-VITAMIN D [Concomitant]
     Indication: VITAMIN SUPPLEMENTATION
     Dosage: 1 TABLET, DAILY
     Route: 048
     Dates: start: 20160329
  17. COMPAZINE /00013302/ [Concomitant]
     Active Substance: PROCHLORPERAZINE EDISYLATE
     Indication: NAUSEA
     Dosage: 10 MG, EVERY 6 HOURS DAILY AS NEEDED
     Route: 048
     Dates: start: 20160329

REACTIONS (2)
  - Hypotension [Recovered/Resolved]
  - Dehydration [Recovered/Resolved]

NARRATIVE: CASE EVENT DATE: 20160824
